FAERS Safety Report 21258392 (Version 3)
Quarter: 2022Q3

REPORT INFORMATION
  Report Type: Spontaneous
  Country: US (occurrence: US)
  Receive Date: 20220826
  Receipt Date: 20220920
  Transmission Date: 20221026
  Serious: Yes (Other)
  Sender: FDA-Public Use
  Company Number: US-PFIZER INC-PV202200050369

PATIENT
  Age: 67 Year
  Sex: Female

DRUGS (1)
  1. XELJANZ XR [Suspect]
     Active Substance: TOFACITINIB CITRATE
     Dosage: UNK

REACTIONS (9)
  - Rheumatoid arthritis [Unknown]
  - Musculoskeletal stiffness [Unknown]
  - Muscular weakness [Unknown]
  - Arthropathy [Unknown]
  - Back disorder [Unknown]
  - Joint swelling [Unknown]
  - Fatigue [Unknown]
  - Illness [Unknown]
  - Pain [Unknown]

NARRATIVE: CASE EVENT DATE: 20220101
